FAERS Safety Report 5646820-7 (Version None)
Quarter: 2008Q1

REPORT INFORMATION
  Report Type: 
  Country: None (occurrence: None)
  Receive Date: 20080303
  Receipt Date: 20080222
  Transmission Date: 20080703
  Serious: Yes (Death, Hospitalization, Other)
  Sender: FDA-Public Use
  Company Number: HQWYE411123JUL04

PATIENT
  Sex: Female
  Weight: 64.92 kg

DRUGS (6)
  1. PREMPRO [Suspect]
     Indication: HOT FLUSH
  2. PREMPRO [Suspect]
     Indication: NIGHT SWEATS
  3. MEDROXYPROGESTERONE ACETATE [Suspect]
     Dosage: UNKNOWN
     Route: 048
     Dates: start: 19970101, end: 20010101
  4. ESTROGEN NOS [Suspect]
  5. PREMARIN [Suspect]
     Dosage: UNKNOWN
     Route: 048
     Dates: start: 19970101, end: 20010101
  6. PROVERA [Suspect]

REACTIONS (1)
  - BREAST CANCER METASTATIC [None]
